FAERS Safety Report 6547257-9 (Version None)
Quarter: 2010Q1

REPORT INFORMATION
  Report Type: 
  Country: None (occurrence: None)
  Receive Date: 20100122
  Receipt Date: 20090609
  Transmission Date: 20100710
  Serious: No
  Sender: FDA-Public Use
  Company Number: US-BAUSCH-2009BL003191

PATIENT
  Age: 46 Year
  Sex: Female

DRUGS (4)
  1. ZYLET [Suspect]
     Indication: KERATITIS
     Route: 047
     Dates: start: 20090101
  2. ELAVIL [Suspect]
     Indication: INSOMNIA
     Route: 048
  3. ZYRTEC [Suspect]
     Indication: ALLERGY TO ANIMAL
     Route: 048
  4. ZANAFLEX [Suspect]
     Indication: BACK PAIN
     Route: 048

REACTIONS (1)
  - VISUAL IMPAIRMENT [None]
